FAERS Safety Report 7419972-6 (Version None)
Quarter: 2011Q2

REPORT INFORMATION
  Report Type: 
  Country: None (occurrence: None)
  Receive Date: 20110413
  Receipt Date: 20110413
  Transmission Date: 20111010
  Serious: No
  Sender: FDA-Public Use
  Company Number: None

PATIENT
  Age: 59 Year
  Sex: Female
  Weight: 40.8237 kg

DRUGS (1)
  1. BONIVA [Suspect]
     Indication: OSTEOPOROSIS
     Dosage: 150 MG 1 TABLET A MONTH
     Dates: start: 20100901, end: 20110301

REACTIONS (8)
  - HEADACHE [None]
  - OESOPHAGEAL DISORDER [None]
  - PAIN IN EXTREMITY [None]
  - OESOPHAGEAL PAIN [None]
  - MYALGIA [None]
  - INFLUENZA LIKE ILLNESS [None]
  - GASTRIC DISORDER [None]
  - GASTROINTESTINAL DISORDER [None]
